FAERS Safety Report 19648344 (Version 5)
Quarter: 2022Q2

REPORT INFORMATION
  Report Type: Report from Study
  Country: US (occurrence: US)
  Receive Date: 20210803
  Receipt Date: 20220616
  Transmission Date: 20220720
  Serious: Yes (Hospitalization, Other)
  Sender: FDA-Public Use
  Company Number: US-ABBVIE-21K-163-3982346-00

PATIENT
  Sex: Male

DRUGS (6)
  1. IMBRUVICA [Suspect]
     Active Substance: IBRUTINIB
     Indication: Chronic lymphocytic leukaemia
     Route: 048
     Dates: start: 20210415, end: 20210531
  2. IMBRUVICA [Suspect]
     Active Substance: IBRUTINIB
     Route: 048
  3. IMBRUVICA [Suspect]
     Active Substance: IBRUTINIB
     Route: 048
  4. MODERNA COVID-19 VACCINE [Concomitant]
     Active Substance: ELASOMERAN
     Indication: COVID-19 immunisation
     Dosage: 1ST DOSE
     Route: 030
     Dates: start: 20210322, end: 20210322
  5. MODERNA COVID-19 VACCINE [Concomitant]
     Active Substance: ELASOMERAN
     Dosage: 2ND DOSE
     Route: 030
     Dates: start: 20210419, end: 20210419
  6. MODERNA COVID-19 VACCINE [Concomitant]
     Active Substance: ELASOMERAN
     Dosage: 3RD DOSE
     Route: 030
     Dates: start: 20211231, end: 20211231

REACTIONS (14)
  - Myocardial infarction [Recovering/Resolving]
  - Pneumonia [Unknown]
  - COVID-19 [Recovered/Resolved]
  - Cerebrovascular accident [Not Recovered/Not Resolved]
  - Haemoglobin decreased [Recovered/Resolved]
  - Pneumonia fungal [Not Recovered/Not Resolved]
  - Yellow skin [Unknown]
  - Haemoglobin abnormal [Unknown]
  - Swollen tongue [Recovered/Resolved]
  - Pharyngeal swelling [Unknown]
  - Vertigo [Unknown]
  - Increased tendency to bruise [Unknown]
  - Pruritus [Unknown]
  - Fall [Unknown]

NARRATIVE: CASE EVENT DATE: 20210101
